FAERS Safety Report 5196805-2 (Version None)
Quarter: 2007Q1

REPORT INFORMATION
  Report Type: 
  Country: None (occurrence: None)
  Receive Date: 20070103
  Receipt Date: 20061227
  Transmission Date: 20070707
  Serious: Yes (Other)
  Sender: FDA-Public Use
  Company Number: JP-AVENTIS-200613553JP

PATIENT
  Age: 81 Year
  Sex: Female

DRUGS (9)
  1. AMARYL [Suspect]
     Route: 048
  2. ISOSORBIDE MONONITRATE [Concomitant]
  3. DEPAS [Concomitant]
  4. ASPIRIN [Concomitant]
  5. FAMOTIDINE [Concomitant]
  6. LASIX [Concomitant]
  7. LENDORMIN [Concomitant]
  8. ADALAT [Concomitant]
  9. BISOLVON                           /00004702/ [Concomitant]

REACTIONS (2)
  - CEREBRAL INFARCTION [None]
  - TREMOR [None]
